FAERS Safety Report 14407342 (Version 1)
Quarter: 2018Q1

REPORT INFORMATION
  Report Type: Spontaneous
  Country: GB (occurrence: GB)
  Receive Date: 20180116
  Receipt Date: 20180116
  Transmission Date: 20180509
  Serious: Yes (Disabling)
  Sender: FDA-Public Use
  Company Number: None

PATIENT
  Age: 28 Year
  Sex: Female
  Weight: 53.55 kg

DRUGS (3)
  1. FLAXSEED OIL SUPPLEMENT [Concomitant]
  2. MULTI VITAMINS [Concomitant]
     Active Substance: VITAMINS
  3. HYDROCORTISONE. [Suspect]
     Active Substance: HYDROCORTISONE
     Indication: ECZEMA
     Route: 061
     Dates: start: 20150102, end: 20150305

REACTIONS (11)
  - Burning sensation [None]
  - Insomnia [None]
  - Feeling cold [None]
  - Abortion spontaneous [None]
  - Exposure during pregnancy [None]
  - Eczema [None]
  - Personal relationship issue [None]
  - Pruritus [None]
  - Skin exfoliation [None]
  - Feeling abnormal [None]
  - Impaired work ability [None]

NARRATIVE: CASE EVENT DATE: 20150501
